FAERS Safety Report 19666198 (Version 2)
Quarter: 2021Q3

REPORT INFORMATION
  Report Type: Spontaneous
  Country: DE (occurrence: DE)
  Receive Date: 20210806
  Receipt Date: 20210806
  Transmission Date: 20211014
  Serious: Yes (Hospitalization, Other)
  Sender: FDA-Public Use
  Company Number: DE-ALKEM LABORATORIES LIMITED-DE-ALKEM-2021-04750

PATIENT
  Age: 60 Year
  Sex: Male
  Weight: 87 kg

DRUGS (1)
  1. LINEZOLID. [Suspect]
     Active Substance: LINEZOLID
     Indication: ENTEROCOCCAL INFECTION
     Dosage: 1200 MILLIGRAM, QD
     Route: 048
     Dates: start: 20210603, end: 20210710

REACTIONS (2)
  - Haematotoxicity [Not Recovered/Not Resolved]
  - Lactic acidosis [Recovering/Resolving]

NARRATIVE: CASE EVENT DATE: 20210709
